FAERS Safety Report 8929737 (Version 2)
Quarter: 2012Q4

REPORT INFORMATION
  Report Type: 
  Country: US (occurrence: US)
  Receive Date: 20121121
  Receipt Date: 20121212
  Transmission Date: 20130627
  Serious: Yes (Death, Hospitalization)
  Sender: FDA-Public Use
  Company Number: US-ASTELLAS-1096138

PATIENT
  Age: 49 Year
  Sex: Female

DRUGS (1)
  1. TARCEVA [Suspect]
     Indication: LUNG ADENOCARCINOMA METASTATIC
     Route: 065
     Dates: start: 20110726, end: 20110816

REACTIONS (8)
  - Metastatic neoplasm [Fatal]
  - Dyspnoea [Unknown]
  - Malaise [Unknown]
  - Dehydration [Unknown]
  - Thrombocytopenia [Unknown]
  - Deep vein thrombosis [Unknown]
  - Respiratory failure [Unknown]
  - Pulmonary haemorrhage [Unknown]
